FAERS Safety Report 19124130 (Version 2)
Quarter: 2021Q3

REPORT INFORMATION
  Report Type: Spontaneous
  Country: US (occurrence: US)
  Receive Date: 20210413
  Receipt Date: 20210812
  Transmission Date: 20211014
  Serious: Yes (Other)
  Sender: FDA-Public Use
  Company Number: US-ACCORD-221820

PATIENT
  Age: 65 Year
  Sex: Female

DRUGS (2)
  1. PACLITAXEL/PACLITAXEL LIPOSOME [Suspect]
     Active Substance: PACLITAXEL
     Indication: PERIPHERAL ARTERY OCCLUSION
  2. ACETYLSALICYLIC ACID [Concomitant]
     Active Substance: ASPIRIN

REACTIONS (6)
  - Stent malfunction [Unknown]
  - Femoral artery aneurysm [Unknown]
  - Off label use [Unknown]
  - Aneurysm [Unknown]
  - Vascular stent thrombosis [Unknown]
  - Positive vessel remodelling [Unknown]
